FAERS Safety Report 11228229 (Version 1)
Quarter: 2015Q2

REPORT INFORMATION
  Report Type: Spontaneous
  Country: DE (occurrence: DE)
  Receive Date: 20150630
  Receipt Date: 20150630
  Transmission Date: 20150821
  Serious: Yes (Hospitalization)
  Sender: FDA-Public Use
  Company Number: DE-GILEAD-2015-0150081

PATIENT
  Age: 44 Year
  Sex: Male
  Weight: 72 kg

DRUGS (3)
  1. ZYDELIG [Suspect]
     Active Substance: IDELALISIB
     Indication: CHRONIC LYMPHOCYTIC LEUKAEMIA
     Dosage: 150 MG, BID
     Route: 048
     Dates: start: 20141121, end: 20150311
  2. MABTHERA [Concomitant]
     Active Substance: RITUXIMAB
     Indication: CHRONIC LYMPHOCYTIC LEUKAEMIA
     Dosage: 950 MG, UNK
     Route: 042
     Dates: start: 20141121
  3. ZYDELIG [Suspect]
     Active Substance: IDELALISIB
     Dosage: 150 MG, BID
     Route: 048

REACTIONS (5)
  - Arthritis [Recovered/Resolved]
  - Synovitis [Unknown]
  - Arthralgia [Unknown]
  - Condition aggravated [Unknown]
  - Joint effusion [Unknown]

NARRATIVE: CASE EVENT DATE: 20150310
